FAERS Safety Report 11081629 (Version 1)
Quarter: 2015Q2

REPORT INFORMATION
  Report Type: Spontaneous
  Country: US (occurrence: None)
  Receive Date: 20150430
  Receipt Date: 20150430
  Transmission Date: 20150821
  Serious: Yes (Other)
  Sender: FDA-Public Use
  Company Number: None

PATIENT
  Age: 47 Year
  Sex: Female

DRUGS (1)
  1. HUMIRA [Suspect]
     Active Substance: ADALIMUMAB
     Indication: EYE DISORDER
     Dosage: 40 MG, EVERY FOURTEEN DAYS
     Route: 058
     Dates: start: 20141126

REACTIONS (2)
  - Electrocardiogram abnormal [None]
  - Chest pain [None]

NARRATIVE: CASE EVENT DATE: 20150416
